FAERS Safety Report 22929853 (Version 3)
Quarter: 2024Q1

REPORT INFORMATION
  Report Type: Report from Study
  Country: IT (occurrence: IT)
  Receive Date: 20230911
  Receipt Date: 20240223
  Transmission Date: 20240410
  Serious: Yes (Other)
  Sender: FDA-Public Use
  Company Number: IT-CELLTRION INC.-2023IT017645

PATIENT

DRUGS (10)
  1. BEVACIZUMAB [Suspect]
     Active Substance: BEVACIZUMAB
     Indication: Hepatocellular carcinoma
     Dosage: 1200 MG
     Route: 065
     Dates: start: 20230607
  2. ATEZOLIZUMAB [Suspect]
     Active Substance: ATEZOLIZUMAB
     Indication: Hepatocellular carcinoma
     Dosage: 1200 MG, EVERY 3 WEEKS
     Route: 042
     Dates: start: 20230607
  3. TENORMIN [Concomitant]
     Active Substance: ATENOLOL
     Dosage: EVERY 1 DAY
  4. LANSOPRAZOLE [Concomitant]
     Active Substance: LANSOPRAZOLE
  5. SYNJARDY [Concomitant]
     Active Substance: EMPAGLIFLOZIN\METFORMIN HYDROCHLORIDE
     Dosage: EVERY 1 DAY
  6. XARELTO [Concomitant]
     Active Substance: RIVAROXABAN
     Dosage: EVERY 1 DAY
  7. EZETIMIBE\ROSUVASTATIN ZINC [Concomitant]
     Active Substance: EZETIMIBE\ROSUVASTATIN ZINC
     Dosage: EVERY 1 DAY
  8. TRULICITY [Concomitant]
     Active Substance: DULAGLUTIDE
     Dosage: EVERY 1 WEEK
  9. HYDROCHLOROTHIAZIDE\ZOFENOPRIL CALCIUM [Concomitant]
     Active Substance: HYDROCHLOROTHIAZIDE\ZOFENOPRIL CALCIUM
     Dosage: EVERY 1 DAY
  10. LAMIVUDINE [Concomitant]
     Active Substance: LAMIVUDINE
     Dosage: UNK, QD
     Dates: start: 20231003

REACTIONS (2)
  - Hypothyroidism [Recovering/Resolving]
  - Intentional product use issue [Unknown]

NARRATIVE: CASE EVENT DATE: 20230812
